FAERS Safety Report 10011296 (Version 2)
Quarter: 2014Q2

REPORT INFORMATION
  Report Type: Spontaneous
  Country: JP (occurrence: JP)
  Receive Date: 20140314
  Receipt Date: 20140606
  Transmission Date: 20141212
  Serious: Yes (Hospitalization)
  Sender: FDA-Public Use
  Company Number: JP-JNJFOC-20140307746

PATIENT
  Age: 74 Year
  Sex: Female
  Weight: 70 kg

DRUGS (9)
  1. REMICADE [Suspect]
     Indication: RHEUMATOID ARTHRITIS
     Dosage: SECOND DOSE
     Route: 042
     Dates: start: 20131219, end: 20131219
  2. REMICADE [Suspect]
     Indication: RHEUMATOID ARTHRITIS
     Dosage: FIRST DOSE
     Route: 042
     Dates: start: 20131205
  3. REMICADE [Suspect]
     Indication: RHEUMATOID ARTHRITIS
     Dosage: THIRD DOSE
     Route: 042
     Dates: start: 20140116, end: 20140116
  4. METHOTREXATE [Concomitant]
     Route: 048
     Dates: start: 20130404, end: 20140213
  5. PREDONINE [Concomitant]
     Route: 048
     Dates: start: 20130404
  6. FOLIAMIN [Concomitant]
     Route: 048
     Dates: start: 20130404, end: 20140213
  7. RHEUMATREX [Concomitant]
     Route: 048
     Dates: start: 20130404, end: 20140213
  8. ISCOTIN [Concomitant]
     Route: 048
     Dates: start: 20140116, end: 20140215
  9. BONALON [Concomitant]
     Route: 048

REACTIONS (1)
  - Disseminated tuberculosis [Recovering/Resolving]
